FAERS Safety Report 24407446 (Version 1)
Quarter: 2024Q4

REPORT INFORMATION
  Report Type: Report from Study
  Country: US (occurrence: US)
  Receive Date: 20241007
  Receipt Date: 20241007
  Transmission Date: 20250114
  Serious: Yes (Other)
  Sender: ALEXION PHARMACEUTICALS
  Company Number: US-AstraZeneca-2024A212512

PATIENT

DRUGS (1)
  1. LYNPARZA [Suspect]
     Active Substance: OLAPARIB
     Indication: Endometrial cancer metastatic
     Dosage: 150 MILLIGRAM, BID

REACTIONS (2)
  - Neuropathy peripheral [Unknown]
  - Underdose [Unknown]
